FAERS Safety Report 23684748 (Version 1)
Quarter: 2024Q1

REPORT INFORMATION
  Report Type: Spontaneous
  Country: FR (occurrence: FR)
  Receive Date: 20240328
  Receipt Date: 20240328
  Transmission Date: 20240409
  Serious: Yes (Death)
  Sender: FDA-Public Use
  Company Number: None

PATIENT
  Age: 63 Year
  Sex: Female
  Weight: 69 kg

DRUGS (1)
  1. GEMZAR [Suspect]
     Active Substance: GEMCITABINE HYDROCHLORIDE
     Indication: Ovarian epithelial cancer
     Dosage: 1 DOSAGE FORM, EVERY 21 DAYS
     Route: 042
     Dates: start: 20211015, end: 20220315

REACTIONS (2)
  - Thrombotic microangiopathy [Fatal]
  - Atypical haemolytic uraemic syndrome [Fatal]

NARRATIVE: CASE EVENT DATE: 20220325
